FAERS Safety Report 5678717-0 (Version None)
Quarter: 2008Q1

REPORT INFORMATION
  Report Type: 
  Country: None (occurrence: None)
  Receive Date: 20080320
  Receipt Date: 20080305
  Transmission Date: 20080703
  Serious: Yes (Death)
  Sender: FDA-Public Use
  Company Number: 2008AL001466

PATIENT
  Age: 54 Year
  Sex: Male

DRUGS (5)
  1. MELOXICAM [Suspect]
     Indication: OSTEOARTHRITIS
     Dosage: 15 MG; PO
     Route: 048
     Dates: start: 20060301
  2. TRAMADOL HCL [Concomitant]
  3. ACETAMINOPHEN [Concomitant]
  4. AMITRIPTYLINE HCL [Concomitant]
  5. OXYCODONE HCL [Concomitant]

REACTIONS (1)
  - DUODENAL ULCER HAEMORRHAGE [None]
